FAERS Safety Report 22256631 (Version 2)
Quarter: 2023Q4

REPORT INFORMATION
  Report Type: Spontaneous
  Country: US (occurrence: US)
  Receive Date: 20230426
  Receipt Date: 20231030
  Transmission Date: 20240109
  Serious: Yes (Other)
  Sender: FDA-Public Use
  Company Number: US-BRISTOL-MYERS SQUIBB COMPANY-2023-055800

PATIENT
  Age: 68 Year
  Sex: Male

DRUGS (1)
  1. LENALIDOMIDE [Suspect]
     Active Substance: LENALIDOMIDE
     Indication: Plasma cell myeloma
     Dosage: TAKE 1 CAPSULE BY MOUTH MON-FRI AND OFF ON WEEKENDS FOR 3 WEEKS THEN 7 DAYS OFF
     Route: 048
     Dates: start: 20221213

REACTIONS (2)
  - Bronchitis [Recovering/Resolving]
  - Off label use [Unknown]
